FAERS Safety Report 15097089 (Version 2)
Quarter: 2018Q3

REPORT INFORMATION
  Report Type: Spontaneous
  Country: RU (occurrence: RU)
  Receive Date: 20180702
  Receipt Date: 20180724
  Transmission Date: 20181010
  Serious: No
  Sender: FDA-Public Use
  Company Number: RU-SYNTHON BV-NL01PV18_47088

PATIENT
  Age: 87 Year
  Sex: Male

DRUGS (1)
  1. PROFLOSIN [Suspect]
     Active Substance: TAMSULOSIN HYDROCHLORIDE
     Indication: PROSTATITIS
     Dosage: UNK  (1 IN 1 TOTAL)
     Route: 065
     Dates: start: 20180521, end: 20180521

REACTIONS (2)
  - Product use in unapproved indication [Recovered/Resolved]
  - Erection increased [Not Recovered/Not Resolved]
